FAERS Safety Report 10268690 (Version 1)
Quarter: 2014Q2

REPORT INFORMATION
  Report Type: Spontaneous
  Country: US (occurrence: US)
  Receive Date: 20140630
  Receipt Date: 20140630
  Transmission Date: 20141212
  Serious: No
  Sender: FDA-Public Use
  Company Number: US-PFIZER INC-2014174616

PATIENT
  Age: 55 Year
  Sex: Female

DRUGS (7)
  1. XANAX [Suspect]
     Dosage: UNK
  2. VITAMIN B-COMPLEX [Suspect]
     Dosage: UNK
  3. VITAMIN E [Suspect]
     Dosage: UNK
  4. VITAMIN C [Suspect]
     Dosage: UNK
  5. GLUCOSAMINE-CHONDROITIN [Suspect]
     Dosage: UNK
  6. CODEINE [Suspect]
     Dosage: UNK
  7. PERCOCET [Suspect]
     Dosage: UNK

REACTIONS (1)
  - Drug hypersensitivity [Unknown]
